FAERS Safety Report 6299585-2 (Version None)
Quarter: 2009Q3

REPORT INFORMATION
  Report Type: 
  Country: None (occurrence: None)
  Receive Date: 20090806
  Receipt Date: 20090727
  Transmission Date: 20100115
  Serious: Yes (Hospitalization, Other)
  Sender: FDA-Public Use
  Company Number: US-ABBOTT-09P-163-0587657-00

PATIENT
  Sex: Female
  Weight: 64.014 kg

DRUGS (4)
  1. SYNTHROID [Suspect]
     Indication: HYPOTHYROIDISM
     Dates: start: 20020101, end: 20090601
  2. SYNTHROID [Suspect]
     Dosage: INCREASE MCG BY 12.5 EVERY 3 DAYS TO 100
  3. PROTONIX [Concomitant]
     Indication: DRUG USE FOR UNKNOWN INDICATION
  4. DILTIAZEM [Concomitant]
     Indication: DRUG USE FOR UNKNOWN INDICATION

REACTIONS (5)
  - CONSTIPATION [None]
  - DIARRHOEA [None]
  - HYPERHIDROSIS [None]
  - PALPITATIONS [None]
  - THYROID CANCER [None]
